FAERS Safety Report 25925510 (Version 1)
Quarter: 2025Q4

REPORT INFORMATION
  Report Type: Spontaneous
  Country: US (occurrence: None)
  Receive Date: 20251014
  Receipt Date: 20251014
  Transmission Date: 20260118
  Serious: No
  Sender: FDA-CTU
  Company Number: None

PATIENT
  Age: 51 Year
  Sex: Female
  Weight: 48.6 kg

DRUGS (3)
  1. ALENDRONATE [Suspect]
     Active Substance: ALENDRONATE SODIUM
     Indication: Osteoporosis
     Dosage: FREQUENCY : WEEKLY;?
     Route: 048
     Dates: start: 20250920, end: 20251004
  2. CALCIUM [Concomitant]
     Active Substance: CALCIUM
  3. Vitamin D3 supplement [Concomitant]

REACTIONS (6)
  - Gastrooesophageal reflux disease [None]
  - Dyspepsia [None]
  - Abdominal pain upper [None]
  - Abdominal pain [None]
  - Arthralgia [None]
  - Fatigue [None]

NARRATIVE: CASE EVENT DATE: 20250927
